FAERS Safety Report 4933304-4 (Version None)
Quarter: 2006Q1

REPORT INFORMATION
  Report Type: 
  Country: None (occurrence: None)
  Receive Date: 20060306
  Receipt Date: 20040930
  Transmission Date: 20060701
  Serious: Yes (Hospitalization, Other)
  Sender: FDA-Public Use
  Company Number: DE-BRISTOL-MYERS SQUIBB COMPANY-13295605

PATIENT
  Age: 41 Year
  Sex: Male

DRUGS (28)
  1. REYATAZ [Suspect]
     Indication: HIV INFECTION
     Dosage: 1 X 300 MG SINCE MAR-2003
     Dates: start: 19980101
  2. SUSTIVA [Suspect]
     Indication: HIV INFECTION
     Dates: start: 19980101
  3. ZERIT [Suspect]
     Indication: HIV INFECTION
     Dates: start: 19980101
  4. VIDEX [Suspect]
     Indication: HIV INFECTION
     Dates: start: 19980101
  5. LITALIR [Suspect]
     Indication: HIV INFECTION
     Dates: start: 19980101
  6. VINCRISTINE [Suspect]
     Indication: BURKITT'S LYMPHOMA
     Dates: start: 20021001
  7. ABACAVIR [Concomitant]
     Indication: HIV INFECTION
     Dates: start: 19980101
  8. ZIDOVUDINE [Concomitant]
     Indication: HIV INFECTION
     Dates: start: 19980101
  9. LAMIVUDINE [Concomitant]
     Indication: HIV INFECTION
     Dosage: 1 X 245 MG SINCE MAR-2003
     Dates: start: 19980101
  10. TENOFOVIR [Concomitant]
     Indication: HIV INFECTION
     Dosage: 1 X 245 MG SINCE 22-JAN-2004
     Dates: start: 19980101
  11. SAQUINAVIR [Concomitant]
     Indication: HIV INFECTION
     Dates: start: 19980101
  12. RITONAVIR [Concomitant]
     Indication: HIV INFECTION
     Dosage: 2 X 100 MG SINCE 22-JAN-2004
     Dates: start: 19980101
  13. INDINIVIR SULFATE [Concomitant]
     Indication: HIV INFECTION
     Dates: start: 19980101
  14. LOPINAVIR [Concomitant]
     Indication: HIV INFECTION
     Dates: start: 19980101
  15. ENFUVIRTIDE [Concomitant]
     Indication: HIV INFECTION
     Route: 058
  16. PROTEASE INHIBITOR [Concomitant]
     Indication: HIV INFECTION
  17. CORTISONE ACETATE TAB [Concomitant]
     Indication: BURKITT'S LYMPHOMA
     Dates: start: 20021001
  18. CYCLOPHOSPHAMIDE [Concomitant]
     Indication: BURKITT'S LYMPHOMA
     Dates: start: 20021001
  19. DOXORUBICIN HCL [Concomitant]
     Indication: BURKITT'S LYMPHOMA
     Dates: start: 20021001
  20. PREDNISONE [Concomitant]
     Indication: BURKITT'S LYMPHOMA
     Dates: start: 20021001
  21. RITUXIMAB [Concomitant]
     Indication: BURKITT'S LYMPHOMA
     Dates: start: 20021217
  22. PANTOZOL [Concomitant]
  23. FILGRASTIM [Concomitant]
  24. PENTACARINAT [Concomitant]
     Route: 055
  25. MORPHINE [Concomitant]
     Dates: start: 20030301
  26. CAELYX [Concomitant]
     Indication: KAPOSI'S SARCOMA
  27. ACYCLOVIR SODIUM [Concomitant]
     Indication: ANAL FISSURE
     Route: 042
  28. ANTIBIOTIC [Concomitant]
     Indication: PSEUDOMONAL SEPSIS

REACTIONS (12)
  - ANAL FISSURE [None]
  - BONE MARROW FAILURE [None]
  - BURKITT'S LYMPHOMA [None]
  - DRUG RESISTANCE [None]
  - KAPOSI'S SARCOMA [None]
  - MUCOSAL INFLAMMATION [None]
  - MULTIPLE-DRUG RESISTANCE [None]
  - OSTEONECROSIS [None]
  - PANCREATITIS [None]
  - PSEUDOMONAL SEPSIS [None]
  - SEPSIS [None]
  - THERAPEUTIC AGENT TOXICITY [None]
